FAERS Safety Report 11093491 (Version 1)
Quarter: 2015Q2

REPORT INFORMATION
  Report Type: Report from Study
  Country: CA (occurrence: None)
  Receive Date: 20150504
  Receipt Date: 20150504
  Transmission Date: 20150821
  Serious: Yes (Other)
  Sender: FDA-Public Use
  Company Number: 2014SA144622

PATIENT
  Age: 73 Year
  Sex: Female

DRUGS (20)
  1. METHOTREXATE [Suspect]
     Active Substance: METHOTREXATE
     Dates: end: 201303
  2. DEXILANT [Concomitant]
     Active Substance: DEXLANSOPRAZOLE
  3. TYLENOL W/CODEINE NO. 3 (CODEINE PHOSPHATE/PARACETAMOL) [Concomitant]
  4. SULFASALAZINE. [Concomitant]
     Active Substance: SULFASALAZINE
  5. ENBREL [Suspect]
     Active Substance: ETANERCEPT
     Indication: PSORIATIC ARTHROPATHY
     Dosage: 50 MILLIGRAM(S); INJECTION, SOLUTION; SUBCUTANEOUS; WEEKLY,
     Route: 058
     Dates: start: 20120612, end: 20130517
  6. AMLODIPINE [Concomitant]
     Active Substance: AMLODIPINE BESYLATE
  7. SENOKOT (SENNA ALEXANDRINA) [Concomitant]
  8. ASPIRIN. [Concomitant]
     Active Substance: ASPIRIN
  9. METHOTREXATE [Concomitant]
     Active Substance: METHOTREXATE
  10. IRBESARTAN. [Concomitant]
     Active Substance: IRBESARTAN
  11. LIPITOR [Concomitant]
     Active Substance: ATORVASTATIN CALCIUM
  12. PANTOPRAZOLE [Concomitant]
     Active Substance: PANTOPRAZOLE SODIUM
  13. VITAMIN B COMPLEX (CALCIUM PANTOTHENATE/NICOTINAMIDE/PYRIDOXINE HYDROCHLORIDE/RIBOFLAVIN/THIAMINE HYDROCHLORIDE) [Concomitant]
  14. PLAQUENIL [Suspect]
     Active Substance: HYDROXYCHLOROQUINE SULFATE
     Dates: end: 201303
  15. EURO-FER (FERROUS FUMARATE) [Concomitant]
  16. FENTANYL. [Concomitant]
     Active Substance: FENTANYL
  17. TEARS NATURALE (DEXTRAN 70/HYPROMELLOSE) [Concomitant]
  18. DURAGESICFENTANYL) [Concomitant]
  19. ATORVASTATIN CALCIUM. [Concomitant]
     Active Substance: ATORVASTATIN CALCIUM
  20. PENICILLIN (BENZYLPENICILLIN) [Concomitant]
     Active Substance: PENICILLIN G

REACTIONS (8)
  - Blister [None]
  - Herpes zoster [None]
  - Pain [None]
  - Pulmonary fibrosis [None]
  - Eye disorder [None]
  - Constipation [None]
  - Respiratory tract infection [None]
  - Nasopharyngitis [None]
